FAERS Safety Report 20631397 (Version 1)
Quarter: 2022Q1

REPORT INFORMATION
  Report Type: Spontaneous
  Country: US (occurrence: US)
  Receive Date: 20220324
  Receipt Date: 20220324
  Transmission Date: 20220424
  Serious: No
  Sender: FDA-Public Use
  Company Number: US-IMPEL NEUROPHARMA-2022-SPO-TR-0007

PATIENT

DRUGS (1)
  1. TRUDHESA [Suspect]
     Active Substance: DIHYDROERGOTAMINE MESYLATE
     Indication: Product used for unknown indication
     Dosage: UNK UNK, PRN
     Route: 065

REACTIONS (2)
  - Nasal congestion [Unknown]
  - Dyspnoea [Unknown]
